FAERS Safety Report 8208266-7 (Version None)
Quarter: 2012Q1

REPORT INFORMATION
  Report Type: 
  Country: None (occurrence: None)
  Receive Date: 20120314
  Receipt Date: 20120309
  Transmission Date: 20120608
  Serious: Yes (Other)
  Sender: FDA-Public Use
  Company Number: PHHY2012IS001520

PATIENT
  Sex: Female

DRUGS (1)
  1. FEMARA [Suspect]

REACTIONS (5)
  - ARTHRALGIA [None]
  - MYALGIA [None]
  - HYPERHIDROSIS [None]
  - MUSCLE TIGHTNESS [None]
  - INSOMNIA [None]
